FAERS Safety Report 5005737-1 (Version None)
Quarter: 2006Q2

REPORT INFORMATION
  Report Type: 
  Country: None (occurrence: None)
  Receive Date: 20060515
  Receipt Date: 20060508
  Transmission Date: 20061013
  Serious: Yes (Hospitalization, Other)
  Sender: FDA-Public Use
  Company Number: ITWYE606108MAY06

PATIENT
  Age: 69 Year
  Sex: Female

DRUGS (5)
  1. FAXINE (VENLAFAXINE HYDROCHLORIDE, CAPSULE, EXTENDED RELEASE) [Suspect]
     Dosage: 75 MG 1X PER 1 DAY, ORAL
     Route: 048
     Dates: start: 20060313, end: 20060420
  2. DEPAKINE CRONO (VALPROATE SODIUM) [Concomitant]
  3. CABERGOLINE [Concomitant]
  4. CARVEDILOL [Concomitant]
  5. ANTACAL (AMLODIPINE BESILATE) [Concomitant]

REACTIONS (2)
  - CARDIAC FAILURE [None]
  - FACE OEDEMA [None]
